FAERS Safety Report 4354089-9 (Version None)
Quarter: 2004Q2

REPORT INFORMATION
  Report Type: 
  Country: None (occurrence: None)
  Receive Date: 20040506
  Receipt Date: 20040426
  Transmission Date: 20050107
  Serious: Yes (Other)
  Sender: FDA-Public Use
  Company Number: ES-BRISTOL-MYERS SQUIBB COMPANY-12569927

PATIENT
  Age: 34 Year
  Sex: Male

DRUGS (3)
  1. STAVUDINE [Suspect]
     Indication: RETROVIRAL INFECTION
  2. LAMIVUDINE [Suspect]
     Indication: RETROVIRAL INFECTION
  3. INDINAVIR [Suspect]
     Indication: RETROVIRAL INFECTION

REACTIONS (1)
  - ASEPTIC NECROSIS BONE [None]
